FAERS Safety Report 14958651 (Version 2)
Quarter: 2018Q2

REPORT INFORMATION
  Report Type: Spontaneous
  Country: JP (occurrence: JP)
  Receive Date: 20180531
  Receipt Date: 20180611
  Transmission Date: 20180711
  Serious: Yes (Death, Life-Threatening, Hospitalization, Other)
  Sender: FDA-Public Use
  Company Number: JP-BAYER-2018-071054

PATIENT
  Age: 65 Year
  Sex: Male
  Weight: 97.6 kg

DRUGS (12)
  1. XOFIGO [Suspect]
     Active Substance: RADIUM RA-223 DICHLORIDE
     Indication: METASTASES TO BONE
     Dosage: 55 KBQ/KG, ONCE
     Route: 042
     Dates: start: 20171208, end: 20171208
  2. XOFIGO [Suspect]
     Active Substance: RADIUM RA-223 DICHLORIDE
     Indication: HORMONE-REFRACTORY PROSTATE CANCER
     Dosage: 55 KBQ/KG, ONCE
     Route: 042
     Dates: start: 20180105, end: 20180105
  3. FUROSEMIDE. [Concomitant]
     Active Substance: FUROSEMIDE
     Indication: RENAL IMPAIRMENT
     Dosage: 40MG DAILY
     Route: 048
     Dates: start: 20180416, end: 20180506
  4. ALLOPURINOL. [Concomitant]
     Active Substance: ALLOPURINOL
     Indication: HYPERURICAEMIA
     Dosage: 100MG DAILY
     Route: 048
     Dates: end: 20180506
  5. ATORVASTATIN [Concomitant]
     Active Substance: ATORVASTATIN
     Indication: HYPERLIPIDAEMIA
     Dosage: 10MG DAILY
     Route: 048
     Dates: end: 20180506
  6. XOFIGO [Suspect]
     Active Substance: RADIUM RA-223 DICHLORIDE
     Indication: HORMONE-REFRACTORY PROSTATE CANCER
     Dosage: 55 KBQ/KG, ONCE
     Route: 042
     Dates: start: 20180330, end: 20180330
  7. ARGAMATE [Concomitant]
     Active Substance: CALCIUM POLYSTYRENE SULFONATE
     Dosage: UNK
     Route: 048
     Dates: start: 20180416, end: 20180506
  8. XOFIGO [Suspect]
     Active Substance: RADIUM RA-223 DICHLORIDE
     Indication: HORMONE-REFRACTORY PROSTATE CANCER
     Dosage: 55 KBQ/KG, ONCE
     Route: 042
     Dates: start: 20180302, end: 20180302
  9. LANSOPRAZOLE. [Concomitant]
     Active Substance: LANSOPRAZOLE
     Indication: PROPHYLAXIS AGAINST GASTROINTESTINAL ULCER
     Dosage: 30MG DAILY
     Route: 048
     Dates: end: 20180506
  10. XOFIGO [Suspect]
     Active Substance: RADIUM RA-223 DICHLORIDE
     Indication: HORMONE-REFRACTORY PROSTATE CANCER
     Dosage: 55 KBQ/KG, ONCE
     Route: 042
     Dates: start: 20171110, end: 20171110
  11. XOFIGO [Suspect]
     Active Substance: RADIUM RA-223 DICHLORIDE
     Indication: HORMONE-REFRACTORY PROSTATE CANCER
     Dosage: 55 KBQ/KG, ONCE
     Route: 042
     Dates: start: 20180202, end: 20180202
  12. ISOSORBIDE. [Concomitant]
     Active Substance: ISOSORBIDE
     Indication: VASODILATATION
     Dosage: 20MG DAILY
     Route: 048
     Dates: end: 20180506

REACTIONS (9)
  - Platelet count decreased [Not Recovered/Not Resolved]
  - Metastases to lung [None]
  - Haemoglobin decreased [Not Recovered/Not Resolved]
  - Disseminated intravascular coagulation [Not Recovered/Not Resolved]
  - Metastases to liver [None]
  - Lymphadenopathy [Fatal]
  - Anaemia [Not Recovered/Not Resolved]
  - Hormone-refractory prostate cancer [Fatal]
  - White blood cell count decreased [Not Recovered/Not Resolved]

NARRATIVE: CASE EVENT DATE: 20180406
